FAERS Safety Report 6781846-1 (Version None)
Quarter: 2010Q2

REPORT INFORMATION
  Report Type: 
  Country: None (occurrence: None)
  Receive Date: 20100621
  Receipt Date: 20100614
  Transmission Date: 20101027
  Serious: Yes (Hospitalization)
  Sender: FDA-Public Use
  Company Number: PHHO2010KR09080

PATIENT
  Sex: Male

DRUGS (1)
  1. ACLASTA/ZOLEDRONATE T29581+A+ [Suspect]
     Indication: OSTEONECROSIS
     Dosage: 5 MG
     Route: 042
     Dates: start: 20091028

REACTIONS (3)
  - DISEASE PROGRESSION [None]
  - HIP ARTHROPLASTY [None]
  - OSTEONECROSIS [None]
